FAERS Safety Report 5330307-5 (Version None)
Quarter: 2007Q2

REPORT INFORMATION
  Report Type: 
  Country: None (occurrence: None)
  Receive Date: 20070521
  Receipt Date: 20070509
  Transmission Date: 20071010
  Serious: Yes (Hospitalization, Other)
  Sender: FDA-Public Use
  Company Number: HQWYE146411MAY07

PATIENT
  Age: 24 Year
  Sex: Male

DRUGS (4)
  1. EFFEXOR XR [Suspect]
     Indication: DEPRESSION
     Route: 048
     Dates: start: 20061115, end: 20061204
  2. EFFEXOR XR [Interacting]
     Route: 048
     Dates: start: 20061205
  3. ETHANOL [Interacting]
     Dosage: UNKNOWN
     Route: 048
  4. CLONAZEPAM [Concomitant]
     Dosage: UNKNOWN
     Route: 048

REACTIONS (6)
  - ALCOHOL INTERACTION [None]
  - INTENTIONAL DRUG MISUSE [None]
  - PHYSICAL ASSAULT [None]
  - SOCIAL AVOIDANT BEHAVIOUR [None]
  - SUICIDAL BEHAVIOUR [None]
  - SUICIDAL IDEATION [None]
